FAERS Safety Report 15617354 (Version 1)
Quarter: 2018Q4

REPORT INFORMATION
  Report Type: Spontaneous
  Country: US (occurrence: US)
  Receive Date: 20181112
  Receipt Date: 20181112
  Transmission Date: 20190205
  Serious: Yes (Disabling)
  Sender: FDA-Public Use
  Company Number: None

PATIENT
  Age: 47 Year
  Sex: Male
  Weight: 83.25 kg

DRUGS (8)
  1. COPAXONE [Suspect]
     Active Substance: GLATIRAMER ACETATE
     Indication: MULTIPLE SCLEROSIS
     Dosage: ?          QUANTITY:1 INJECTION(S);OTHER FREQUENCY:THREE TIMES A WEEK;?
     Route: 058
     Dates: start: 20021001, end: 20180906
  2. COPAXONE [Concomitant]
     Active Substance: GLATIRAMER ACETATE
  3. VITAMIN D [Concomitant]
     Active Substance: CHOLECALCIFEROL
  4. BUPROPION. [Concomitant]
     Active Substance: BUPROPION
  5. METHYLPHENIDATE. [Concomitant]
     Active Substance: METHYLPHENIDATE
  6. VITAMIN B12 [Concomitant]
     Active Substance: CYANOCOBALAMIN
  7. MULTI VITAMIN [Concomitant]
     Active Substance: VITAMINS
  8. OMEPRAZOLE. [Concomitant]
     Active Substance: OMEPRAZOLE

REACTIONS (2)
  - Injection site necrosis [None]
  - Skin necrosis [None]

NARRATIVE: CASE EVENT DATE: 20180904
